FAERS Safety Report 23058381 (Version 4)
Quarter: 2023Q4

REPORT INFORMATION
  Report Type: Spontaneous
  Country: NL (occurrence: NL)
  Receive Date: 20231012
  Receipt Date: 20231118
  Transmission Date: 20240110
  Serious: Yes (Hospitalization, Other)
  Sender: FDA-Public Use
  Company Number: NL-MACLEODS PHARMACEUTICALS US LTD-MAC2023043775

PATIENT

DRUGS (8)
  1. ESCITALOPRAM [Suspect]
     Active Substance: ESCITALOPRAM OXALATE
     Indication: Post-traumatic stress disorder
     Dosage: UNK, LIQUID (DROPS)
     Route: 065
     Dates: start: 2021
  2. ESCITALOPRAM [Suspect]
     Active Substance: ESCITALOPRAM OXALATE
     Indication: Generalised anxiety disorder
     Dosage: 1 MILLIGRAM, Q.W. (LIQUID (DROPS) IN THE BUILD-UP PHASE.)
     Route: 065
     Dates: start: 2021
  3. ESCITALOPRAM [Suspect]
     Active Substance: ESCITALOPRAM OXALATE
     Indication: Depression
     Dosage: 7 MILLIGRAM, QD, (SEVEN WEEKS LATER (LIQUID (DROPS) IN THE BUILD-UP PHASE))
     Route: 065
     Dates: start: 2021, end: 2021
  4. ESCITALOPRAM [Suspect]
     Active Substance: ESCITALOPRAM OXALATE
     Dosage: 10 MILLIGRAM, TABLETS (DOSE INCREASED)
     Route: 065
     Dates: start: 2021, end: 2021
  5. ESCITALOPRAM [Suspect]
     Active Substance: ESCITALOPRAM OXALATE
     Dosage: 5 MILLIGRAM, (TABLETS,DOSE WAS HALVED FOR SEVEN DAY)
     Route: 065
     Dates: start: 2021
  6. ESCITALOPRAM [Suspect]
     Active Substance: ESCITALOPRAM OXALATE
     Dosage: 10 MILLIGRAM, DOSE INCREASED
     Route: 065
  7. QUETIAPINE [Suspect]
     Active Substance: QUETIAPINE
     Indication: Depression
     Dosage: 25 MILLIGRAM
     Route: 048
     Dates: start: 2021, end: 2021
  8. QUETIAPINE [Suspect]
     Active Substance: QUETIAPINE
     Indication: Generalised anxiety disorder
     Dosage: 12.5 MILLIGRAM
     Route: 065
     Dates: start: 2021

REACTIONS (11)
  - Generalised anxiety disorder [Recovered/Resolved]
  - Transient global amnesia [Recovered/Resolved]
  - Anterograde amnesia [Recovered/Resolved]
  - Illusion [Recovered/Resolved]
  - Depression [Recovered/Resolved]
  - Retrograde amnesia [Recovered/Resolved]
  - Hallucination [Recovered/Resolved]
  - Dry eye [Unknown]
  - Disturbance in attention [Unknown]
  - Dry mouth [Unknown]
  - Drug ineffective [Unknown]

NARRATIVE: CASE EVENT DATE: 20210101
